FAERS Safety Report 5575195-7 (Version None)
Quarter: 2007Q4

REPORT INFORMATION
  Report Type: 
  Country: None (occurrence: None)
  Receive Date: 20071227
  Receipt Date: 20071217
  Transmission Date: 20080405
  Serious: Yes (Hospitalization, Other)
  Sender: FDA-Public Use
  Company Number: US-ELI_LILLY_AND_COMPANY-US200712000278

PATIENT
  Sex: Female

DRUGS (9)
  1. FORTEO [Suspect]
     Indication: OSTEOPOROSIS
     Dates: start: 20071004, end: 20071112
  2. FORTEO [Suspect]
     Dosage: UNK, UNK
  3. LIPITOR [Concomitant]
  4. DYAZIDE [Concomitant]
  5. NITROGLYCERIN [Concomitant]
  6. TRICOR [Concomitant]
  7. POTASSIUM CHLORIDE [Concomitant]
  8. CARDIZEM [Concomitant]
  9. ASPIRIN CHILDREN [Concomitant]
     Dates: start: 20070101

REACTIONS (9)
  - BALANCE DISORDER [None]
  - CARDIAC PACEMAKER INSERTION [None]
  - COMMUNICATION DISORDER [None]
  - DYSPNOEA [None]
  - FALL [None]
  - LOSS OF CONSCIOUSNESS [None]
  - MALAISE [None]
  - MEMORY IMPAIRMENT [None]
  - WALKING AID USER [None]
